FAERS Safety Report 4631567-6 (Version None)
Quarter: 2005Q2

REPORT INFORMATION
  Report Type: 
  Country: None (occurrence: None)
  Receive Date: 20050407
  Receipt Date: 20050328
  Transmission Date: 20051028
  Serious: Yes (Hospitalization, Other)
  Sender: FDA-Public Use
  Company Number: 2005023375

PATIENT
  Age: 67 Year
  Sex: Female
  Weight: 81.6475 kg

DRUGS (9)
  1. ZITHROMAX [Suspect]
     Indication: BRONCHITIS
     Dosage: 250 MG (250 MG, 1 IN 1 D), ORAL
     Route: 048
     Dates: start: 19970101
  2. CLINDAMYCIN HYDROCHLORIDE [Suspect]
     Indication: CELLULITIS
     Dosage: ORAL
     Route: 048
     Dates: start: 20040801, end: 20040801
  3. CLINDAMYCIN HYDROCHLORIDE [Suspect]
     Indication: CELLULITIS
     Dosage: ORAL
     Route: 048
     Dates: start: 20040801, end: 20040801
  4. VANCOMYCIN [Suspect]
     Indication: CELLULITIS
     Dosage: INTRAVENOUS
     Route: 042
     Dates: start: 20040801
  5. LEVOTHYROXINE SODIUM [Suspect]
     Indication: HYPOTHYROIDISM
     Dosage: ORAL
     Route: 048
     Dates: end: 20020101
  6. .................. [Concomitant]
  7. CLONAZEPAM [Concomitant]
  8. ACETAMINOPHEN [Concomitant]
  9. AMLODIPINE BESYLATE [Concomitant]

REACTIONS (13)
  - ARTHRALGIA [None]
  - CELLULITIS [None]
  - DRUG HYPERSENSITIVITY [None]
  - FALL [None]
  - FATIGUE [None]
  - HYPERTHYROIDISM [None]
  - HYPOTHYROIDISM [None]
  - JARISCH-HERXHEIMER REACTION [None]
  - RASH [None]
  - SKIN LACERATION [None]
  - THERAPY NON-RESPONDER [None]
  - UPPER LIMB FRACTURE [None]
  - WEIGHT INCREASED [None]
